FAERS Safety Report 7086213-1 (Version None)
Quarter: 2010Q4

REPORT INFORMATION
  Report Type: 
  Country: None (occurrence: None)
  Receive Date: 20101105
  Receipt Date: 20101018
  Transmission Date: 20110411
  Serious: Yes (Other)
  Sender: FDA-Public Use
  Company Number: SE-AMGEN-STX344875

PATIENT

DRUGS (13)
  1. MIMPARA [Suspect]
     Indication: HYPERPARATHYROIDISM SECONDARY
     Dosage: 30 MG, UNK
     Dates: start: 20060101, end: 20060101
  2. MIMPARA [Suspect]
     Dosage: 60 MG, UNK
     Dates: start: 20060101, end: 20060901
  3. MIMPARA [Suspect]
     Dosage: 90 MG, UNK
     Dates: start: 20060901, end: 20090201
  4. MIMPARA [Suspect]
     Dosage: 90 MG, QD
     Dates: start: 20090301, end: 20090427
  5. MIMPARA [Suspect]
     Dosage: 60 MG, QD
     Dates: start: 20090608, end: 20091023
  6. MIMPARA [Suspect]
     Dosage: 30 MG, QD
     Dates: start: 20060101
  7. UNSPECIFIED BETA BLOCKER [Concomitant]
  8. HEPARIN SODIUM [Concomitant]
  9. OMNISCAN [Concomitant]
     Dosage: UNK
     Dates: start: 20060101
  10. ETALPHA                            /00318501/ [Concomitant]
     Dosage: UNK
     Dates: end: 20090201
  11. ETALPHA                            /00318501/ [Concomitant]
     Dosage: 0.25 A?G, UNK
     Dates: start: 20090101, end: 20091023
  12. CALCICHEW [Concomitant]
     Dosage: UNK
     Dates: start: 20090305
  13. SENDOXAN [Suspect]

REACTIONS (10)
  - ANGIOPATHY [None]
  - ATRIAL FIBRILLATION [None]
  - CARDIAC FAILURE [None]
  - FUNGAL INFECTION [None]
  - LISTERIOSIS [None]
  - NEPHROGENIC SYSTEMIC FIBROSIS [None]
  - SEPSIS [None]
  - SUPERIOR VENA CAVAL OCCLUSION [None]
  - VASCULITIS [None]
  - VENOUS STENOSIS [None]
